FAERS Safety Report 18503044 (Version 1)
Quarter: 2020Q4

REPORT INFORMATION
  Report Type: Report from Study
  Country: RO (occurrence: RO)
  Receive Date: 20201113
  Receipt Date: 20201113
  Transmission Date: 20210114
  Serious: Yes (Other)
  Sender: FDA-Public Use
  Company Number: NVSC2020RO154570

PATIENT
  Age: 63 Year
  Sex: Male

DRUGS (1)
  1. ULTIBRO BREEZHALER [Suspect]
     Active Substance: GLYCOPYRRONIUM\INDACATEROL
     Indication: BRONCHITIS
     Route: 065

REACTIONS (3)
  - Concomitant disease aggravated [Unknown]
  - Cardiac fibrillation [Unknown]
  - Hypertension [Unknown]
